FAERS Safety Report 10168650 (Version 1)
Quarter: 2014Q2

REPORT INFORMATION
  Report Type: Spontaneous
  Country: US (occurrence: None)
  Receive Date: 20140509
  Receipt Date: 20140509
  Transmission Date: 20141212
  Serious: Yes (Death, Life-Threatening, Hospitalization, Other)
  Sender: FDA-Public Use
  Company Number: VAL_03109_2014

PATIENT
  Age: 39 Year
  Sex: Male

DRUGS (2)
  1. METOPROLOL [Suspect]
     Indication: PRODUCT USED FOR UNKNOWN INDICATION
     Dosage: DF
  2. DILTIAZEM [Suspect]
     Indication: PRODUCT USED FOR UNKNOWN INDICATION
     Dosage: DF

REACTIONS (7)
  - Unresponsive to stimuli [None]
  - Cardiac arrest [None]
  - Brain oedema [None]
  - Hyperlipidaemia [None]
  - Pancreatitis [None]
  - Overdose [None]
  - Toxicity to various agents [None]
